FAERS Safety Report 5086014-X (Version None)
Quarter: 2006Q3

REPORT INFORMATION
  Report Type: 
  Country: None (occurrence: None)
  Receive Date: 20060817
  Receipt Date: 20060807
  Transmission Date: 20061208
  Serious: Yes (Hospitalization)
  Sender: FDA-Public Use
  Company Number: 2006095941

PATIENT
  Age: 55 Year
  Sex: Female

DRUGS (5)
  1. CABERGOLINE [Suspect]
     Indication: PARKINSON'S DISEASE
     Dosage: 4 MG (1 MG), ORAL
     Route: 048
     Dates: start: 20040407, end: 20060520
  2. SELEGILINE (SELEGILINE) [Concomitant]
  3. LEVODOPA (LEVODOPA) [Concomitant]
  4. BENSERAZIDE (BENSERAZIDE) [Concomitant]
  5. CARBIDOPA (CARBIDOPA) [Concomitant]

REACTIONS (4)
  - AORTIC VALVE INCOMPETENCE [None]
  - CARDIAC FAILURE [None]
  - PULMONARY HYPERTENSION [None]
  - TRICUSPID VALVE INCOMPETENCE [None]
